FAERS Safety Report 4475940-8 (Version None)
Quarter: 2004Q4

REPORT INFORMATION
  Report Type: 
  Country: None (occurrence: None)
  Receive Date: 20041012
  Receipt Date: 20040928
  Transmission Date: 20050328
  Serious: Yes (Other)
  Sender: FDA-Public Use
  Company Number: 2004058531

PATIENT
  Age: 69 Year
  Sex: Male
  Weight: 64.4108 kg

DRUGS (2)
  1. NEURONTIN [Suspect]
     Indication: GRAND MAL CONVULSION
     Dosage: 1600 MG (400 MG, 4 IN 1 D), ORAL
     Route: 048
     Dates: start: 20000101
  2. DILANTIN [Suspect]
     Indication: GRAND MAL CONVULSION
     Dosage: 100 MG, ORAL
     Route: 048

REACTIONS (5)
  - CONVULSION [None]
  - HYPOAESTHESIA [None]
  - INTERVERTEBRAL DISC PROTRUSION [None]
  - NEURITIS [None]
  - PHARMACEUTICAL PRODUCT COMPLAINT [None]
